FAERS Safety Report 7026609-7 (Version None)
Quarter: 2010Q4

REPORT INFORMATION
  Report Type: 
  Country: None (occurrence: None)
  Receive Date: 20101004
  Receipt Date: 20100928
  Transmission Date: 20110411
  Serious: Yes (Death, Life-Threatening, Hospitalization)
  Sender: FDA-Public Use
  Company Number: JP-NOVOPROD-314183

PATIENT
  Age: 61 Year
  Sex: Male
  Weight: 56 kg

DRUGS (2)
  1. VICTOZA [Suspect]
     Indication: TYPE 2 DIABETES MELLITUS
     Dosage: 0.3 MG, QD
     Route: 058
     Dates: start: 20100825
  2. ELASPOL                            /01588701/ [Concomitant]

REACTIONS (4)
  - ATRIAL FIBRILLATION [None]
  - DIABETIC KETOACIDOSIS [None]
  - PNEUMONIA BACTERIAL [None]
  - SEPSIS [None]
